FAERS Safety Report 6927630-7 (Version None)
Quarter: 2010Q3

REPORT INFORMATION
  Report Type: 
  Country: None (occurrence: None)
  Receive Date: 20100817
  Receipt Date: 20100804
  Transmission Date: 20110219
  Serious: Yes (Hospitalization, Other)
  Sender: FDA-Public Use
  Company Number: PHBS2005JP17010

PATIENT
  Age: 78 Year
  Sex: Female

DRUGS (2)
  1. GLEEVEC [Suspect]
     Indication: GASTROINTESTINAL STROMAL TUMOUR
     Dosage: 400 MG/D
     Route: 048
     Dates: start: 20050201
  2. GLEEVEC [Suspect]
     Dosage: 400 MG/D
     Route: 048

REACTIONS (8)
  - DECREASED APPETITE [None]
  - DIARRHOEA [None]
  - FACE OEDEMA [None]
  - HEPATECTOMY [None]
  - OEDEMA [None]
  - OEDEMA PERIPHERAL [None]
  - POST PROCEDURAL BILE LEAK [None]
  - STOMATITIS [None]
